FAERS Safety Report 17173930 (Version 7)
Quarter: 2020Q3

REPORT INFORMATION
  Report Type: Spontaneous
  Country: US (occurrence: US)
  Receive Date: 20191218
  Receipt Date: 20200702
  Transmission Date: 20201102
  Serious: No
  Sender: FDA-Public Use
  Company Number: NVSC2019US072077

PATIENT
  Sex: Male

DRUGS (6)
  1. AFINITOR [Suspect]
     Active Substance: EVEROLIMUS
     Dosage: 2.5 MG, QD
     Route: 065
     Dates: start: 20191129
  2. LENVIMA [Suspect]
     Active Substance: LENVATINIB
     Dosage: 8 MG, QD (ONCE DAILY)
     Route: 048
     Dates: start: 20200107
  3. AFINITOR [Suspect]
     Active Substance: EVEROLIMUS
     Dosage: 2.5 MG, QD
     Route: 065
     Dates: start: 202003
  4. LENVIMA [Suspect]
     Active Substance: LENVATINIB
     Indication: BONE CANCER
     Dosage: 12 MG, QD
     Route: 048
     Dates: start: 20191129
  5. AFINITOR [Suspect]
     Active Substance: EVEROLIMUS
     Indication: BONE CANCER
     Dosage: 5 MG, QD
     Route: 065
  6. LENVIMA [Suspect]
     Active Substance: LENVATINIB
     Dosage: 8 MG, QD
     Route: 048
     Dates: start: 202003

REACTIONS (11)
  - Blood pressure increased [Not Recovered/Not Resolved]
  - Asthenia [Not Recovered/Not Resolved]
  - Diarrhoea [Not Recovered/Not Resolved]
  - Fatigue [Not Recovered/Not Resolved]
  - Nocturia [Unknown]
  - Product use in unapproved indication [Unknown]
  - Gastrooesophageal reflux disease [Recovered/Resolved]
  - Blood glucose increased [Not Recovered/Not Resolved]
  - Faeces pale [Unknown]
  - Alopecia [Not Recovered/Not Resolved]
  - Swelling face [Not Recovered/Not Resolved]
